FAERS Safety Report 19045958 (Version 1)
Quarter: 2021Q1

REPORT INFORMATION
  Report Type: Spontaneous
  Country: CA (occurrence: CA)
  Receive Date: 20210322
  Receipt Date: 20210322
  Transmission Date: 20210420
  Serious: Yes (Other)
  Sender: FDA-Public Use
  Company Number: CA-TEVA-2021-CA-1891901

PATIENT
  Sex: Female

DRUGS (10)
  1. CLONAZEPAM. [Concomitant]
     Active Substance: CLONAZEPAM
     Route: 065
  2. VENLAFAXINE HYDROCHLORIDE. [Suspect]
     Active Substance: VENLAFAXINE HYDROCHLORIDE
     Route: 065
  3. MACRODANTIN [Concomitant]
     Active Substance: NITROFURANTOIN
  4. PROVERA [Concomitant]
     Active Substance: MEDROXYPROGESTERONE ACETATE
  5. CONJUGATED ESTROGENS/MEDROGESTONE [Concomitant]
     Active Substance: ESTROGENS, CONJUGATED\MEDROGESTONE
  6. VENLAFAXINE HYDROCHLORIDE. [Suspect]
     Active Substance: VENLAFAXINE HYDROCHLORIDE
     Route: 065
  7. VENLAFAXINE HYDROCHLORIDE. [Suspect]
     Active Substance: VENLAFAXINE HYDROCHLORIDE
     Route: 048
  8. QUETIAPINE FUMARATE. [Suspect]
     Active Substance: QUETIAPINE FUMARATE
     Indication: PRODUCT USED FOR UNKNOWN INDICATION
     Route: 048
  9. VENLAFAXINE HYDROCHLORIDE. [Suspect]
     Active Substance: VENLAFAXINE HYDROCHLORIDE
     Indication: PRODUCT USED FOR UNKNOWN INDICATION
     Route: 065
  10. VENLAFAXINE HYDROCHLORIDE. [Suspect]
     Active Substance: VENLAFAXINE HYDROCHLORIDE
     Route: 065

REACTIONS (19)
  - Amnesia [Unknown]
  - Anger [Unknown]
  - Decreased appetite [Unknown]
  - Decreased interest [Unknown]
  - Hypoaesthesia [Unknown]
  - Weight increased [Unknown]
  - Asthenia [Unknown]
  - Disturbance in attention [Unknown]
  - Feelings of worthlessness [Unknown]
  - Intentional self-injury [Unknown]
  - Sleep disorder [Unknown]
  - Condition aggravated [Unknown]
  - Nightmare [Unknown]
  - Tremor [Unknown]
  - Drug ineffective [Unknown]
  - Anhedonia [Unknown]
  - Mood altered [Unknown]
  - Anxiety [Unknown]
  - Initial insomnia [Unknown]
